FAERS Safety Report 6926142-4 (Version None)
Quarter: 2010Q3

REPORT INFORMATION
  Report Type: 
  Country: None (occurrence: None)
  Receive Date: 20100816
  Receipt Date: 20100804
  Transmission Date: 20110219
  Serious: No
  Sender: FDA-Public Use
  Company Number: US-B.I. PHARMACEUTICALS,INC./RIDGEFIELD-2010-BP-08324BP

PATIENT
  Age: 75 Year
  Sex: Female

DRUGS (7)
  1. TWYNSTA [Suspect]
     Indication: HYPERTENSION
     Route: 048
     Dates: start: 20091201, end: 20100713
  2. TWYNSTA [Suspect]
     Route: 048
     Dates: start: 20100714
  3. SPIRONDACT [Concomitant]
     Indication: RENAL DISORDER
  4. LIPITOR [Concomitant]
     Indication: BLOOD CHOLESTEROL INCREASED
  5. BYSTOLIC [Concomitant]
     Indication: HYPERTENSION
  6. FLECAINIDE ACETATE [Concomitant]
     Indication: ATRIAL FIBRILLATION
  7. LASIX [Concomitant]
     Indication: FLUID RETENTION

REACTIONS (3)
  - BLOOD PRESSURE INADEQUATELY CONTROLLED [None]
  - HEART RATE INCREASED [None]
  - PANIC ATTACK [None]
